FAERS Safety Report 23458462 (Version 1)
Quarter: 2024Q1

REPORT INFORMATION
  Report Type: Spontaneous
  Country: JP (occurrence: JP)
  Receive Date: 20240130
  Receipt Date: 20240130
  Transmission Date: 20240409
  Serious: Yes (Death, Other)
  Sender: FDA-Public Use
  Company Number: JP-BAYER-2023A173847

PATIENT
  Age: 79 Year
  Sex: Male
  Weight: 58 kg

DRUGS (6)
  1. STIVARGA [Suspect]
     Active Substance: REGORAFENIB
     Indication: Colon cancer
     Dosage: 80MG/BODY, 3-WEEK TREATMENT FOLLOWED BY 1-WEEK REST PERIOD, 3 CYCLES
     Route: 048
     Dates: end: 20231116
  2. STIVARGA [Suspect]
     Active Substance: REGORAFENIB
     Indication: Palliative care
  3. AMLODIPINE [Suspect]
     Active Substance: AMLODIPINE BESYLATE
     Indication: Hypertension
     Dosage: DAILY DOSE 5 MG
     Route: 048
     Dates: start: 20231020, end: 20231120
  4. AMOXICILLIN [Concomitant]
     Active Substance: AMOXICILLIN
     Indication: Urinary tract infection
     Dosage: 1 DF, TID
     Route: 048
     Dates: start: 20231026, end: 20231028
  5. MIYA-BM [Concomitant]
     Active Substance: CLOSTRIDIUM BUTYRICUM SPORES STRAIN M-55
     Indication: Gastrointestinal disorder prophylaxis
     Dosage: 1 DF, TID
     Route: 048
     Dates: start: 20231026, end: 20231028
  6. MIYA-BM [Concomitant]
     Active Substance: CLOSTRIDIUM BUTYRICUM SPORES STRAIN M-55
     Indication: Gastrointestinal disorder prophylaxis

REACTIONS (11)
  - Acute hepatic failure [Fatal]
  - Hepatobiliary disease [Fatal]
  - Aspartate aminotransferase increased [None]
  - Alanine aminotransferase increased [None]
  - Asthenia [None]
  - Fatigue [None]
  - Decreased appetite [None]
  - Jaundice [None]
  - Weight decreased [None]
  - Hypertension [Recovering/Resolving]
  - Off label use [None]

NARRATIVE: CASE EVENT DATE: 20231116
